FAERS Safety Report 16269183 (Version 1)
Quarter: 2019Q2

REPORT INFORMATION
  Report Type: Spontaneous
  Country: FR (occurrence: FR)
  Receive Date: 20190503
  Receipt Date: 20190503
  Transmission Date: 20190711
  Serious: Yes (Death)
  Sender: FDA-Public Use
  Company Number: FR-B.I. PHARMACEUTICALS,INC./RIDGEFIELD-2019-12-001397

PATIENT
  Age: 64 Year
  Sex: Male
  Weight: 136 kg

DRUGS (1)
  1. PRADAXA [Suspect]
     Active Substance: DABIGATRAN ETEXILATE MESYLATE
     Indication: THROMBOSIS PROPHYLAXIS
     Route: 048
     Dates: start: 20030101

REACTIONS (3)
  - Intracranial pressure increased [Fatal]
  - Drug ineffective [Not Recovered/Not Resolved]
  - Ischaemic stroke [Fatal]

NARRATIVE: CASE EVENT DATE: 20190408
